FAERS Safety Report 17294666 (Version 3)
Quarter: 2020Q1

REPORT INFORMATION
  Report Type: Spontaneous
  Country: US (occurrence: US)
  Receive Date: 20200121
  Receipt Date: 20200224
  Transmission Date: 20200409
  Serious: Yes (Other)
  Sender: FDA-Public Use
  Company Number: US-PFIZER INC-2020023104

PATIENT
  Age: 52 Year
  Sex: Female
  Weight: 73.92 kg

DRUGS (7)
  1. PREGABALIN. [Suspect]
     Active Substance: PREGABALIN
     Indication: TRIGEMINAL NEURALGIA
     Dosage: 200 MG, 2X/DAY
     Dates: start: 20190906
  2. DALFAMPRIDINE. [Concomitant]
     Active Substance: DALFAMPRIDINE
     Dosage: 10 MG 2, 2X/DAY
  3. LYRICA [Concomitant]
     Active Substance: PREGABALIN
     Dosage: 200 MG + 100 MG, 600 MG PER DAY
     Dates: start: 20180211, end: 20190906
  4. PREGABALIN. [Suspect]
     Active Substance: PREGABALIN
     Indication: PAIN
     Dosage: 200 MG, DAILY
  5. OXCARBAZEPINE. [Concomitant]
     Active Substance: OXCARBAZEPINE
     Dosage: 150 MG 9 TO 6, 3X A DAY
  6. PREGABALIN. [Suspect]
     Active Substance: PREGABALIN
     Dosage: 100 MG, 2X/DAY
     Dates: end: 201912
  7. PREGABALIN. [Suspect]
     Active Substance: PREGABALIN
     Dosage: 300 MG, 2X/DAY (200MG AND A 100MG TWICE A DAY)
     Route: 048
     Dates: start: 2018, end: 2018

REACTIONS (11)
  - Drug ineffective [Not Recovered/Not Resolved]
  - Sleep disorder [Not Recovered/Not Resolved]
  - Gait disturbance [Unknown]
  - Head discomfort [Unknown]
  - Multiple sclerosis [Unknown]
  - Ear discomfort [Unknown]
  - Loss of personal independence in daily activities [Unknown]
  - Eating disorder [Not Recovered/Not Resolved]
  - Speech disorder [Not Recovered/Not Resolved]
  - Crying [Unknown]
  - Screaming [Unknown]

NARRATIVE: CASE EVENT DATE: 2018
